FAERS Safety Report 7291003-0 (Version None)
Quarter: 2011Q1

REPORT INFORMATION
  Report Type: 
  Country: None (occurrence: None)
  Receive Date: 20110214
  Receipt Date: 20110203
  Transmission Date: 20110831
  Serious: Yes (Other)
  Sender: FDA-Public Use
  Company Number: US-NOVOPROD-322751

PATIENT
  Sex: Female

DRUGS (4)
  1. ACTIVELLA [Suspect]
     Indication: HOT FLUSH
     Dosage: 1.0 MG, 6 TIMES WEEKLY
     Route: 048
     Dates: start: 20030101
  2. VAGIFEM [Suspect]
     Dosage: 10 MCG, UNK
     Route: 067
  3. SIMVASTATIN [Concomitant]
     Indication: BLOOD CHOLESTEROL INCREASED
  4. VAGIFEM [Suspect]
     Indication: PRODUCT USED FOR UNKNOWN INDICATION
     Dosage: 25 MCG, BIW
     Route: 067
     Dates: start: 20060101

REACTIONS (1)
  - OVARIAN CYST [None]
